FAERS Safety Report 23305669 (Version 3)
Quarter: 2024Q1

REPORT INFORMATION
  Report Type: Spontaneous
  Country: SA (occurrence: SA)
  Receive Date: 20231218
  Receipt Date: 20240102
  Transmission Date: 20240409
  Serious: Yes (Other)
  Sender: FDA-Public Use
  Company Number: SA-BAXTER-2023BAX036844

PATIENT
  Age: 33 Year
  Sex: Female

DRUGS (2)
  1. ELECTROLYTES NOS [Suspect]
     Active Substance: ELECTROLYTES NOS
     Indication: Drug therapy
     Dosage: UNK
     Route: 065
  2. LIDOCAINE\MAGNESIUM SULFATE\MANNITOL\PLASMA-LYTE A\SODIUM BICARBONATE [Suspect]
     Active Substance: LIDOCAINE\MAGNESIUM SULFATE\MANNITOL\PLASMA-LYTE A\SODIUM BICARBONATE
     Indication: Drug therapy
     Dosage: UNK
     Route: 065

REACTIONS (6)
  - Arrhythmia [Unknown]
  - Cardiomyopathy [Unknown]
  - Electrocardiogram abnormal [Unknown]
  - Drug ineffective [Unknown]
  - Blood lactic acid increased [Unknown]
  - Heart rate irregular [Unknown]
